FAERS Safety Report 8957460 (Version 1)
Quarter: 2012Q4

REPORT INFORMATION
  Report Type: Report from Study
  Country: AU (occurrence: AU)
  Receive Date: 20121211
  Receipt Date: 20121211
  Transmission Date: 20130627
  Serious: Yes (Hospitalization, Other)
  Sender: FDA-Public Use
  Company Number: AU-ROCHE-1165141

PATIENT
  Sex: Female

DRUGS (4)
  1. TOCILIZUMAB [Suspect]
     Indication: RHEUMATOID ARTHRITIS
     Route: 042
     Dates: start: 20120712
  2. MICARDIS [Concomitant]
     Indication: HYPERTENSION
     Route: 048
  3. NEXIUM [Concomitant]
     Route: 048
  4. ENDEP [Concomitant]
     Indication: ANXIETY
     Route: 048

REACTIONS (2)
  - Chest pain [Unknown]
  - Myocardial infarction [Not Recovered/Not Resolved]
